FAERS Safety Report 7975521-5 (Version None)
Quarter: 2011Q4

REPORT INFORMATION
  Report Type: 
  Country: None (occurrence: None)
  Receive Date: 20111213
  Receipt Date: 20110930
  Transmission Date: 20120403
  Serious: No
  Sender: FDA-Public Use
  Company Number: US-AMGEN-USASP2011050713

PATIENT
  Sex: Female

DRUGS (1)
  1. ENBREL [Suspect]
     Indication: RHEUMATOID ARTHRITIS
     Dates: start: 20110902

REACTIONS (8)
  - ASTHENIA [None]
  - NAUSEA [None]
  - CHILLS [None]
  - HYPERHIDROSIS [None]
  - FEELING ABNORMAL [None]
  - DIARRHOEA [None]
  - APHAGIA [None]
  - DYSPEPSIA [None]
